FAERS Safety Report 23323553 (Version 1)
Quarter: 2023Q4

REPORT INFORMATION
  Report Type: Spontaneous
  Country: US (occurrence: None)
  Receive Date: 20231220
  Receipt Date: 20231220
  Transmission Date: 20240110
  Serious: No
  Sender: FDA-Public Use
  Company Number: US-ROCHE-3403444

PATIENT

DRUGS (2)
  1. RITUXAN [Suspect]
     Active Substance: RITUXIMAB
     Indication: Granulomatosis with polyangiitis
     Route: 065
  2. PAXLOVID [Suspect]
     Active Substance: NIRMATRELVIR\RITONAVIR
     Indication: Granulomatosis with polyangiitis
     Dosage: TAKE 2 NIRMATRELVIR TABLETS AND 1 RITONAVIR TABLET?TOGETHER BY MOUTH TWICE DAILY FOR 5 DAYS
     Route: 048

REACTIONS (2)
  - Inappropriate schedule of product administration [Unknown]
  - COVID-19 [Unknown]
